FAERS Safety Report 8617745-X (Version None)
Quarter: 2012Q3

REPORT INFORMATION
  Report Type: 
  Country: None (occurrence: None)
  Receive Date: 20120824
  Receipt Date: 20120117
  Transmission Date: 20120928
  Serious: No
  Sender: FDA-Public Use
  Company Number: US-ASTRAZENECA-2012SE03245

PATIENT
  Age: 40 Year
  Sex: Female

DRUGS (2)
  1. SYMBICORT [Suspect]
     Indication: CHRONIC OBSTRUCTIVE PULMONARY DISEASE
     Dosage: TOTAL DAILY DOSAGE 160/4.5 TWO PUFFS TWICE DAILY
     Route: 055
  2. SYMBICORT [Suspect]
     Dosage: TOTAL DAILY DOSAGE ONE PUFF TWICE DAILY
     Route: 055

REACTIONS (3)
  - FEELING JITTERY [None]
  - DRUG PRESCRIBING ERROR [None]
  - INCORRECT DOSE ADMINISTERED [None]
